FAERS Safety Report 15740204 (Version 1)
Quarter: 2018Q4

REPORT INFORMATION
  Report Type: Spontaneous
  Country: FR (occurrence: FR)
  Receive Date: 20181219
  Receipt Date: 20181219
  Transmission Date: 20190205
  Serious: Yes (Hospitalization)
  Sender: FDA-Public Use
  Company Number: FR-BEH-2018095555

PATIENT
  Age: 80 Year
  Sex: Male
  Weight: 80 kg

DRUGS (1)
  1. CONFIDEX [Suspect]
     Active Substance: COAGULATION FACTOR IX HUMAN\COAGULATION FACTOR VII HUMAN\COAGULATION FACTOR X HUMAN\PROTEIN C\PROTEIN S HUMAN\PROTHROMBIN
     Indication: ANTICOAGULANT THERAPY
     Dosage: UNK
     Route: 042
     Dates: start: 20180628, end: 20180628

REACTIONS (1)
  - Deep vein thrombosis [Not Recovered/Not Resolved]

NARRATIVE: CASE EVENT DATE: 20180703
